FAERS Safety Report 17562126 (Version 1)
Quarter: 2020Q1

REPORT INFORMATION
  Report Type: Spontaneous
  Country: GB (occurrence: GB)
  Receive Date: 20200319
  Receipt Date: 20200319
  Transmission Date: 20200409
  Serious: Yes (Hospitalization, Other)
  Sender: FDA-Public Use
  Company Number: GB-MYLANLABS-2020M1028465

PATIENT
  Age: 74 Year
  Sex: Male

DRUGS (15)
  1. CARBAMAZEPINE. [Suspect]
     Active Substance: CARBAMAZEPINE
     Indication: EPILEPSY
     Dosage: 800 MILLIGRAM, QD
     Route: 048
  2. CALCICHEW D3 [Concomitant]
     Active Substance: CALCIUM\CHOLECALCIFEROL
     Dosage: UNK
  3. ATORVASTATIN [Concomitant]
     Active Substance: ATORVASTATIN
     Dosage: UNK
  4. RANITIDINE. [Concomitant]
     Active Substance: RANITIDINE
     Dosage: UNK
  5. FLUDROCORTISONE ACETATE. [Concomitant]
     Active Substance: FLUDROCORTISONE ACETATE
     Dosage: UNK
  6. DOXYCYCLINE HYCLATE. [Concomitant]
     Active Substance: DOXYCYCLINE HYCLATE
     Dosage: UNK
  7. HYDROCORTISONE. [Concomitant]
     Active Substance: HYDROCORTISONE
  8. SENNAE [Concomitant]
     Dosage: UNK
  9. DILTIAZEM. [Suspect]
     Active Substance: DILTIAZEM
     Indication: ATRIAL FIBRILLATION
     Dosage: 200 MILLIGRAM, QD
     Route: 048
  10. LACTULOSE. [Concomitant]
     Active Substance: LACTULOSE
     Dosage: UNK
  11. AMIODARONE [Concomitant]
     Active Substance: AMIODARONE
     Dosage: UNK
  12. EDOXABAN TOSYLATE [Concomitant]
     Active Substance: EDOXABAN TOSYLATE
     Dosage: UNK
  13. VENTOLIN [Concomitant]
     Active Substance: ALBUTEROL SULFATE
     Dosage: UNK
  14. NEBIVOLOL. [Concomitant]
     Active Substance: NEBIVOLOL
     Dosage: UNK
  15. GLYCERYL TRINITRATE [Concomitant]
     Active Substance: NITROGLYCERIN
     Dosage: UNK

REACTIONS (5)
  - Confusional state [Unknown]
  - Toxicity to various agents [Recovering/Resolving]
  - Contraindicated product prescribed [Unknown]
  - Constipation [Unknown]
  - Dysarthria [Unknown]

NARRATIVE: CASE EVENT DATE: 20200115
